FAERS Safety Report 18314288 (Version 3)
Quarter: 2020Q4

REPORT INFORMATION
  Report Type: Report from Study
  Country: US (occurrence: US)
  Receive Date: 20200925
  Receipt Date: 20201216
  Transmission Date: 20210113
  Serious: Yes (Other)
  Sender: FDA-Public Use
  Company Number: US-OTSUKA-2019_042757

PATIENT
  Sex: Female

DRUGS (1)
  1. TOLVAPTAN [Suspect]
     Active Substance: TOLVAPTAN
     Indication: CONGENITAL CYSTIC KIDNEY DISEASE
     Dosage: UNK
     Route: 065
     Dates: start: 201912

REACTIONS (13)
  - Abdominal distension [Not Recovered/Not Resolved]
  - Weight increased [Unknown]
  - Incontinence [Unknown]
  - Nocturia [Unknown]
  - Thirst [Unknown]
  - Oedema [Not Recovered/Not Resolved]
  - Chest pain [Unknown]
  - Gastrooesophageal reflux disease [Unknown]
  - Eating disorder [Unknown]
  - Abdominal pain upper [Not Recovered/Not Resolved]
  - Insomnia [Unknown]
  - Cardiac disorder [Not Recovered/Not Resolved]
  - Blood potassium decreased [Not Recovered/Not Resolved]

NARRATIVE: CASE EVENT DATE: 201912
